FAERS Safety Report 10045500 (Version 1)
Quarter: 2014Q1

REPORT INFORMATION
  Report Type: Spontaneous
  Country: US (occurrence: US)
  Receive Date: 20140328
  Receipt Date: 20140328
  Transmission Date: 20141002
  Serious: Yes (Hospitalization, Other)
  Sender: FDA-Public Use
  Company Number: US-ELI_LILLY_AND_COMPANY-US201403007942

PATIENT
  Age: 79 Year
  Sex: Male

DRUGS (2)
  1. HUMALOG 25% LISPRO, 75% NPL [Suspect]
     Indication: TYPE 2 DIABETES MELLITUS
     Dosage: 38 U, EACH MORNING
     Route: 065
     Dates: start: 201303
  2. HUMALOG 25% LISPRO, 75% NPL [Suspect]
     Dosage: 28 U, EACH EVENING
     Route: 065
     Dates: start: 201303

REACTIONS (2)
  - Cardiac disorder [Unknown]
  - Drug dose omission [Unknown]
